FAERS Safety Report 9122077 (Version 1)
Quarter: 2013Q1

REPORT INFORMATION
  Report Type: Spontaneous
  Country: AU (occurrence: AU)
  Receive Date: 20130114
  Receipt Date: 20130114
  Transmission Date: 20140127
  Serious: Yes (Other)
  Sender: FDA-Public Use
  Company Number: PHHY2013AU002586

PATIENT
  Age: 41 Year
  Sex: Female

DRUGS (3)
  1. METHYLPHENIDATE [Suspect]
  2. INCIVO [Concomitant]
  3. RIBAVIRIN [Concomitant]

REACTIONS (2)
  - Loss of consciousness [Unknown]
  - Overdose [Unknown]
